FAERS Safety Report 6602749-9 (Version None)
Quarter: 2010Q1

REPORT INFORMATION
  Report Type: 
  Country: None (occurrence: None)
  Receive Date: 20100225
  Receipt Date: 20090129
  Transmission Date: 20100710
  Serious: No
  Sender: FDA-Public Use
  Company Number: US-BAUSCH-2009BL000397

PATIENT
  Age: 14 Year
  Sex: Male

DRUGS (2)
  1. DESMOPRESSIN ACETATE [Suspect]
     Indication: OFF LABEL USE
     Route: 045
     Dates: start: 20090127, end: 20090128
  2. DESMOPRESSIN ACETATE [Suspect]
     Indication: ENURESIS
     Route: 045
     Dates: start: 20090127, end: 20090128

REACTIONS (2)
  - DRUG INEFFECTIVE FOR UNAPPROVED INDICATION [None]
  - VOMITING [None]
